FAERS Safety Report 25986945 (Version 1)
Quarter: 2025Q4

REPORT INFORMATION
  Report Type: Spontaneous
  Country: US (occurrence: US)
  Receive Date: 20251102
  Receipt Date: 20251102
  Transmission Date: 20260119
  Serious: No
  Sender: ASTELLAS
  Company Number: US-ASTELLAS-2025-AER-058527

PATIENT
  Age: 59 Year
  Sex: Male

DRUGS (1)
  1. VYLOY [Suspect]
     Active Substance: ZOLBETUXIMAB-CLZB
     Indication: Product use in unapproved indication
     Dosage: HE RECEIVED 384 MG AND HIS TOTAL DOSE WAS CALCULATED TO BE 1384 MG
     Route: 050
     Dates: start: 20251022, end: 20251022

REACTIONS (1)
  - Nausea [Unknown]

NARRATIVE: CASE EVENT DATE: 20251022
